FAERS Safety Report 6830632-2 (Version None)
Quarter: 2010Q3

REPORT INFORMATION
  Report Type: 
  Country: None (occurrence: None)
  Receive Date: 20100709
  Receipt Date: 20100709
  Transmission Date: 20110219
  Serious: Yes (Life-Threatening)
  Sender: FDA-Public Use
  Company Number: None

PATIENT
  Sex: Male

DRUGS (1)
  1. KEPPRA [Suspect]
     Indication: EPILEPSY
     Dosage: 15CC PO BID
     Route: 048
     Dates: start: 20071208

REACTIONS (3)
  - CONVULSION [None]
  - NONSPECIFIC REACTION [None]
  - QUADRIPARESIS [None]
